FAERS Safety Report 14955144 (Version 2)
Quarter: 2018Q2

REPORT INFORMATION
  Report Type: Report from Study
  Country: None (occurrence: IT)
  Receive Date: 20180531
  Receipt Date: 20180614
  Transmission Date: 20180711
  Serious: Yes (Life-Threatening, Hospitalization, Other)
  Sender: FDA-Public Use
  Company Number: IT-ABBVIE-18K-083-2371759-00

PATIENT
  Age: 72 Year
  Sex: Male

DRUGS (1)
  1. DUODOPA [Suspect]
     Active Substance: CARBIDOPA\LEVODOPA
     Indication: PARKINSON^S DISEASE
     Dosage: MD 8?CR 4.2?ED 1.5?MD 5+3?CR 4.2?ED 1.5
     Route: 050
     Dates: start: 20150415, end: 20180611

REACTIONS (3)
  - Fall [Unknown]
  - Subdural haemorrhage [Unknown]
  - Coma [Unknown]

NARRATIVE: CASE EVENT DATE: 2018
